FAERS Safety Report 10704574 (Version 4)
Quarter: 2015Q1

REPORT INFORMATION
  Report Type: Spontaneous
  Country: AR (occurrence: AR)
  Receive Date: 20150112
  Receipt Date: 20150226
  Transmission Date: 20150721
  Serious: Yes (Hospitalization, Disabling, Other)
  Sender: FDA-Public Use
  Company Number: AR-ELI_LILLY_AND_COMPANY-AR201501002641

PATIENT
  Age: 72 Year
  Sex: Female

DRUGS (9)
  1. ENALAPRIL [Concomitant]
     Active Substance: ENALAPRIL
     Route: 065
  2. TRAMADOL [Concomitant]
     Active Substance: TRAMADOL
     Route: 065
  3. CARVEDILOL. [Concomitant]
     Active Substance: CARVEDILOL
     Route: 065
  4. HUMALOG [Suspect]
     Active Substance: INSULIN LISPRO
     Indication: PRODUCT USED FOR UNKNOWN INDICATION
     Dosage: UNK
     Route: 065
     Dates: start: 1999
  5. ESCITALOPRAM [Concomitant]
     Active Substance: ESCITALOPRAM OXALATE
     Route: 065
  6. PARACETAMOL [Concomitant]
     Active Substance: ACETAMINOPHEN
     Route: 065
  7. HUMULIN N [Suspect]
     Active Substance: INSULIN HUMAN
     Indication: PRODUCT USED FOR UNKNOWN INDICATION
     Dosage: UNK UNK, BID
     Route: 065
     Dates: start: 1999
  8. ULTRANEURAL [Concomitant]
     Route: 065
  9. QUETIAPINE [Concomitant]
     Active Substance: QUETIAPINE
     Route: 065

REACTIONS (9)
  - Lung disorder [Recovering/Resolving]
  - Cellulitis [Recovering/Resolving]
  - Glycosylated haemoglobin increased [Unknown]
  - Osteoarthritis [Unknown]
  - Pain [Recovering/Resolving]
  - Renal failure [Unknown]
  - Blindness [Not Recovered/Not Resolved]
  - Urinary tract infection [Recovering/Resolving]
  - Diabetic retinopathy [Unknown]

NARRATIVE: CASE EVENT DATE: 2012
